FAERS Safety Report 10637934 (Version 2)
Quarter: 2015Q2

REPORT INFORMATION
  Report Type: Spontaneous
  Country: US (occurrence: US)
  Receive Date: 20141208
  Receipt Date: 20150424
  Transmission Date: 20150821
  Serious: Yes (Hospitalization, Other)
  Sender: FDA-Public Use
  Company Number: US-PFIZER INC-2014330992

PATIENT
  Age: 59 Year
  Sex: Male
  Weight: 79 kg

DRUGS (3)
  1. LYRICA [Suspect]
     Active Substance: PREGABALIN
     Indication: MUSCLE SPASMS
     Dosage: 100 MG, 3X/DAY
     Dates: start: 2012
  2. LYRICA [Suspect]
     Active Substance: PREGABALIN
     Dosage: 100 MG, 1X/DAY
     Dates: start: 201301
  3. SOMA [Concomitant]
     Active Substance: CARISOPRODOL
     Indication: MUSCLE SPASMS
     Dosage: 350 MG, 1X/DAY (AT NIGHT)
     Dates: start: 201301

REACTIONS (7)
  - Peripheral arterial occlusive disease [Recovered/Resolved]
  - Insomnia [Recovered/Resolved]
  - Physical product label issue [Not Recovered/Not Resolved]
  - Weight fluctuation [Recovered/Resolved]
  - Product use issue [Not Recovered/Not Resolved]
  - Muscle spasms [Not Recovered/Not Resolved]
  - Coronary artery occlusion [Recovered/Resolved]

NARRATIVE: CASE EVENT DATE: 2012
